FAERS Safety Report 6249096-5 (Version None)
Quarter: 2009Q2

REPORT INFORMATION
  Report Type: 
  Country: None (occurrence: None)
  Receive Date: 20090625
  Receipt Date: 20090612
  Transmission Date: 20091009
  Serious: No
  Sender: FDA-Public Use
  Company Number: 2009-198635-NL

PATIENT
  Age: 41 Year
  Sex: Male

DRUGS (1)
  1. MIRTAZAPINE [Suspect]
     Dosage: 30 MG

REACTIONS (7)
  - CARDIOMYOPATHY [None]
  - CD4 LYMPHOCYTES DECREASED [None]
  - FATIGUE [None]
  - GASTROINTESTINAL HAEMORRHAGE [None]
  - LYMPHADENOPATHY MEDIASTINAL [None]
  - PYREXIA [None]
  - SARCOIDOSIS [None]
